FAERS Safety Report 5409834-8 (Version None)
Quarter: 2007Q3

REPORT INFORMATION
  Report Type: 
  Country: None (occurrence: None)
  Receive Date: 20070807
  Receipt Date: 20070723
  Transmission Date: 20080115
  Serious: Yes (Other)
  Sender: FDA-Public Use
  Company Number: 2007EU000823

PATIENT
  Age: 55 Year
  Sex: Female

DRUGS (1)
  1. PROGRAF [Suspect]
     Indication: PEMPHIGOID
     Dosage: 0.1 %, /D, TOPICAL
     Route: 061

REACTIONS (2)
  - PRURITUS [None]
  - T-CELL LYMPHOMA [None]
